FAERS Safety Report 9310521 (Version 5)
Quarter: 2013Q3

REPORT INFORMATION
  Report Type: Spontaneous
  Country: US (occurrence: US)
  Receive Date: 20130527
  Receipt Date: 20130812
  Transmission Date: 20140515
  Serious: No
  Sender: FDA-Public Use
  Company Number: US-PFIZER INC-2013159321

PATIENT
  Age: 53 Year
  Sex: Female
  Weight: 49.89 kg

DRUGS (3)
  1. NEURONTIN [Suspect]
     Indication: NEURALGIA
     Dosage: 600 MG, 3X/DAY
     Route: 048
  2. NEURONTIN [Suspect]
     Indication: PAIN
     Dosage: 600 MG, UNK
     Route: 048
  3. NEURONTIN [Suspect]
     Dosage: 600 MG, UNK
     Route: 048

REACTIONS (7)
  - Hypertension [Recovered/Resolved]
  - Feeling hot [Recovered/Resolved]
  - Discomfort [Recovered/Resolved]
  - Intentional drug misuse [Unknown]
  - Poor quality drug administered [Unknown]
  - Product quality issue [Unknown]
  - Depression [Unknown]
